FAERS Safety Report 18365441 (Version 1)
Quarter: 2020Q4

REPORT INFORMATION
  Report Type: Spontaneous
  Country: US (occurrence: US)
  Receive Date: 20201009
  Receipt Date: 20201009
  Transmission Date: 20210114
  Serious: Yes (Other)
  Sender: FDA-Public Use
  Company Number: None

PATIENT
  Age: 55 Year
  Sex: Male
  Weight: 91.22 kg

DRUGS (18)
  1. REMDESIVIR. [Suspect]
     Active Substance: REMDESIVIR
     Indication: COVID-19
     Dosage: ?          OTHER FREQUENCY:200 MG X1, THEN QD;?
     Route: 041
     Dates: start: 20201001, end: 20201005
  2. CHOLECALCIFEROL [Concomitant]
     Active Substance: CHOLECALCIFEROL
     Dates: start: 20200930, end: 20201009
  3. ROSUVASTATIN. [Concomitant]
     Active Substance: ROSUVASTATIN
     Dates: start: 20200929, end: 20201005
  4. BUDESONIDE (PULMICORT RESPULE) INHALATION [Concomitant]
     Dates: start: 20201001, end: 20201009
  5. DEXAMETHASONE NA PHOS [Concomitant]
     Dates: start: 20200929, end: 20201009
  6. PANTOPRAZOLE  (ORAL) [Concomitant]
     Dates: start: 20200929, end: 20201009
  7. ASCORBIC ACID INJECTION [Concomitant]
     Dates: start: 20200930, end: 20201005
  8. LEVOTHYROXINE. [Concomitant]
     Active Substance: LEVOTHYROXINE
     Dates: start: 20200929, end: 20201009
  9. AZITHROMYCIN INJECTION [Concomitant]
     Dates: start: 20200928, end: 20201006
  10. ENOXAPARIN [Concomitant]
     Active Substance: ENOXAPARIN
     Dates: start: 20200929, end: 20201009
  11. OXYCODONE [Concomitant]
     Active Substance: OXYCODONE
     Dates: start: 20201003, end: 20201003
  12. BENZONATATE                     (PRN) [Concomitant]
     Dates: start: 20201002, end: 20201009
  13. GUAIFENESIN EXTENDED-RELEASE TABLETS [Concomitant]
     Dates: start: 20200930, end: 20201009
  14. ACTEMRA [Suspect]
     Active Substance: TOCILIZUMAB
     Indication: COVID-19
     Dosage: ?          OTHER FREQUENCY:ONCE;?
     Route: 041
     Dates: start: 20201002, end: 20201002
  15. CEFTRIAXONE. [Concomitant]
     Active Substance: CEFTRIAXONE
     Dates: start: 20200928, end: 20201005
  16. ZINC SULFATE (ORAL) [Concomitant]
     Dates: start: 20200929, end: 20201009
  17. ALBUTEROL NEB. SOLN [Concomitant]
     Dates: start: 20201001, end: 20201009
  18. MULTIVITAMIN W/MINERALS [Concomitant]
     Active Substance: MINERALS\VITAMINS
     Dates: start: 20200929, end: 20201009

REACTIONS (3)
  - Aspartate aminotransferase increased [None]
  - Hepatic enzyme increased [None]
  - Alanine aminotransferase increased [None]

NARRATIVE: CASE EVENT DATE: 20201005
